FAERS Safety Report 21381751 (Version 1)
Quarter: 2022Q3

REPORT INFORMATION
  Report Type: Spontaneous
  Country: US (occurrence: None)
  Receive Date: 20220926
  Receipt Date: 20220926
  Transmission Date: 20221027
  Serious: Yes (Disabling)
  Sender: FDA-Public Use
  Company Number: None

PATIENT
  Age: 35 Year
  Sex: Female
  Weight: 99 kg

DRUGS (1)
  1. CIPRO [Suspect]
     Active Substance: CIPROFLOXACIN HYDROCHLORIDE
     Indication: Diverticulitis
     Dates: start: 20220913

REACTIONS (5)
  - Tendon pain [None]
  - Tendon pain [None]
  - Swelling [None]
  - Erythema [None]
  - Mobility decreased [None]

NARRATIVE: CASE EVENT DATE: 20220918
